FAERS Safety Report 25764907 (Version 1)
Quarter: 2025Q3

REPORT INFORMATION
  Report Type: Spontaneous
  Country: EU (occurrence: EU)
  Receive Date: 20250905
  Receipt Date: 20250905
  Transmission Date: 20251020
  Serious: Yes (Other)
  Sender: ROCHE
  Company Number: EU-ROCHE-10000329889

PATIENT
  Sex: Female

DRUGS (9)
  1. OCREVUS [Suspect]
     Active Substance: OCRELIZUMAB
     Indication: Primary progressive multiple sclerosis
     Route: 065
     Dates: start: 202012, end: 20250310
  2. DESLORATADINE [Concomitant]
     Active Substance: DESLORATADINE
  3. ALVESCO [Concomitant]
     Active Substance: CICLESONIDE
  4. CIPRALEX [Concomitant]
     Active Substance: ESCITALOPRAM OXALATE
  5. CHOLECALCIFEROL [Concomitant]
     Active Substance: CHOLECALCIFEROL
  6. MAGNESIUM CARBONATE\MAGNESIUM OXIDE [Concomitant]
     Active Substance: MAGNESIUM CARBONATE\MAGNESIUM OXIDE
  7. SOLIFENACIN [Concomitant]
     Active Substance: SOLIFENACIN
  8. BACLOFEN [Concomitant]
     Active Substance: BACLOFEN
  9. TAMOXIFEN [Concomitant]
     Active Substance: TAMOXIFEN

REACTIONS (1)
  - Neoplasm malignant [Unknown]
